FAERS Safety Report 4881402-6 (Version None)
Quarter: 2005Q4

REPORT INFORMATION
  Report Type: 
  Country: None (occurrence: None)
  Receive Date: 20051201
  Receipt Date: 20050729
  Transmission Date: 20060501
  Serious: No
  Sender: FDA-Public Use
  Company Number: 2005PV000687

PATIENT
  Age: 77 Year
  Sex: Female
  Weight: 88.4514 kg

DRUGS (15)
  1. BYETTA [Suspect]
     Indication: DIABETES MELLITUS NON-INSULIN-DEPENDENT
     Dosage: 5 MCG; BID; SC
     Route: 058
     Dates: start: 20050722
  2. PRANDIN ^KUHN^ [Concomitant]
  3. ACTOS [Concomitant]
  4. LIPITOR [Concomitant]
  5. PREVACID [Concomitant]
  6. LOTENSIN [Concomitant]
  7. THEO-DUR [Concomitant]
  8. ZETIA [Concomitant]
  9. MULTIVITAMIN [Concomitant]
  10. CALCIUM GLUCONATE [Concomitant]
  11. GLUCOSAMINE HYDROCHLORIDE/CHONDROITIN SULFATE [Concomitant]
  12. FISH OIL [Concomitant]
  13. ADVAIR DISKUS 100/50 [Concomitant]
  14. LANTUS [Concomitant]
  15. TYLENOL [Concomitant]

REACTIONS (5)
  - BLOOD GLUCOSE INCREASED [None]
  - DECREASED APPETITE [None]
  - EARLY SATIETY [None]
  - NAUSEA [None]
  - WEIGHT DECREASED [None]
